FAERS Safety Report 6865875-5 (Version None)
Quarter: 2010Q3

REPORT INFORMATION
  Report Type: 
  Country: None (occurrence: None)
  Receive Date: 20100722
  Receipt Date: 20100713
  Transmission Date: 20110219
  Serious: Yes (Hospitalization)
  Sender: FDA-Public Use
  Company Number: US-BIOGENIDEC-2010BI023628

PATIENT
  Age: 58 Year
  Sex: Female
  Weight: 46 kg

DRUGS (6)
  1. AVONEX [Suspect]
     Indication: MULTIPLE SCLEROSIS
     Route: 030
     Dates: start: 19961001, end: 20030801
  2. AVONEX [Suspect]
     Route: 030
     Dates: start: 20030801
  3. PROTONIX [Concomitant]
     Indication: GASTROOESOPHAGEAL REFLUX DISEASE
  4. BACLOFEN [Concomitant]
     Indication: MUSCLE SPASMS
  5. NUVIGIL [Concomitant]
     Indication: ASTHENIA
  6. NEURONTIN [Concomitant]
     Indication: MULTIPLE SCLEROSIS

REACTIONS (4)
  - BLOOD SODIUM DECREASED [None]
  - CERVICAL VERTEBRAL FRACTURE [None]
  - MULTIPLE SCLEROSIS RELAPSE [None]
  - URINARY TRACT INFECTION [None]
